FAERS Safety Report 21241639 (Version 1)
Quarter: 2022Q3

REPORT INFORMATION
  Report Type: Spontaneous
  Country: FR (occurrence: None)
  Receive Date: 20220823
  Receipt Date: 20220823
  Transmission Date: 20221027
  Serious: Yes (Hospitalization, Other)
  Sender: FDA-Public Use
  Company Number: FR-ROCHE-3163254

PATIENT
  Age: 62 Year
  Sex: Male
  Weight: 83 kg

DRUGS (19)
  1. CLONAZEPAM [Suspect]
     Active Substance: CLONAZEPAM
     Indication: Status epilepticus
     Route: 042
     Dates: start: 20220219, end: 20220219
  2. CLONAZEPAM [Suspect]
     Active Substance: CLONAZEPAM
     Indication: Seizure
  3. AUGMENTIN [Suspect]
     Active Substance: AMOXICILLIN\CLAVULANATE POTASSIUM
     Indication: Infection prophylaxis
     Dosage: 1G X 3/D
     Route: 065
     Dates: start: 20220219, end: 20220222
  4. LACOSAMIDE [Concomitant]
     Active Substance: LACOSAMIDE
     Dosage: 150 MG 2/D
  5. BRIVARACETAM [Concomitant]
     Active Substance: BRIVARACETAM
     Dosage: 50 MG 2/D
  6. MEDROL [Concomitant]
     Active Substance: METHYLPREDNISOLONE
     Dates: end: 20220221
  7. HYDROCORTISONE [Concomitant]
     Active Substance: HYDROCORTISONE
     Dosage: 30 MG/D
     Dates: start: 20220223
  8. LEUCOVORIN CALCIUM [Concomitant]
     Active Substance: LEUCOVORIN CALCIUM
     Dosage: 25 MG 1/WEEK
  9. OXYBUTYNIN [Concomitant]
     Active Substance: OXYBUTYNIN
     Dosage: 50 MG 1/D
  10. MELATONIN [Concomitant]
     Active Substance: MELATONIN
     Dosage: 2 MG 1/D
  11. ENOXAPARIN [Concomitant]
     Active Substance: ENOXAPARIN
  12. OMEPRAZOLE [Concomitant]
     Active Substance: OMEPRAZOLE
     Dosage: 20 MG 1/D
  13. BACTRIM [Concomitant]
     Active Substance: SULFAMETHOXAZOLE\TRIMETHOPRIM
     Dosage: 400 MG/80 MG 1/D
  14. LEVETIRACETAM [Concomitant]
     Active Substance: LEVETIRACETAM
     Dosage: LOADING DOSE OF 4G
     Dates: start: 20220224
  15. CLOBAZAM [Concomitant]
     Active Substance: CLOBAZAM
     Dates: start: 20220220, end: 20220228
  16. ETOMIDATE [Concomitant]
     Active Substance: ETOMIDATE
  17. SUCCINYLCHOLINE CHLORIDE [Concomitant]
     Active Substance: SUCCINYLCHOLINE CHLORIDE
  18. PROPOFOL [Concomitant]
     Active Substance: PROPOFOL
     Dates: start: 20220220
  19. SUFENTANIL [Concomitant]
     Active Substance: SUFENTANIL

REACTIONS (2)
  - Hepatic cytolysis [Recovering/Resolving]
  - Thrombocytopenia [Unknown]

NARRATIVE: CASE EVENT DATE: 20220219
